FAERS Safety Report 5541968-X (Version None)
Quarter: 2007Q4

REPORT INFORMATION
  Report Type: 
  Country: None (occurrence: None)
  Receive Date: 20071205
  Receipt Date: 20071122
  Transmission Date: 20080405
  Serious: Yes (Hospitalization)
  Sender: FDA-Public Use
  Company Number: 2007AL005026

PATIENT
  Age: 89 Year
  Sex: Male

DRUGS (10)
  1. FLUOXETINE [Suspect]
     Indication: DEPRESSION
     Dosage: 20 MG; PO
     Route: 048
     Dates: end: 20060605
  2. FRUSEMIDE [Concomitant]
  3. DIGOXIN [Concomitant]
  4. SIMVASTATIN [Concomitant]
  5. LANSOPRAZOLE [Concomitant]
  6. PERINDOPRIL [Concomitant]
  7. SENNA [Concomitant]
  8. LACTULOSE [Concomitant]
  9. SERETIDE [Concomitant]
  10. TIOTROPIUM BROMIDE [Concomitant]

REACTIONS (6)
  - ASTHENIA [None]
  - CONFUSIONAL STATE [None]
  - DYSPHASIA [None]
  - HYPONATRAEMIA [None]
  - LETHARGY [None]
  - VOMITING [None]
